FAERS Safety Report 5078616-1 (Version None)
Quarter: 2006Q3

REPORT INFORMATION
  Report Type: 
  Country: None (occurrence: None)
  Receive Date: 20060810
  Receipt Date: 20060810
  Transmission Date: 20061208
  Serious: Yes (Other)
  Sender: FDA-Public Use
  Company Number: None

PATIENT
  Sex: Female
  Weight: 63.5036 kg

DRUGS (1)
  1. EFFEXOR XR [Suspect]
     Indication: MIGRAINE
     Dosage: 300 MG DAILY PO
     Route: 048
     Dates: start: 20040715, end: 20060810

REACTIONS (15)
  - ANGER [None]
  - ARTHRALGIA [None]
  - CONTUSION [None]
  - DRUG WITHDRAWAL SYNDROME [None]
  - FATIGUE [None]
  - FORMICATION [None]
  - MANIA [None]
  - MEMORY IMPAIRMENT [None]
  - MUSCLE TWITCHING [None]
  - NEUROPATHY PERIPHERAL [None]
  - PARAESTHESIA [None]
  - PARANOIA [None]
  - PRURITUS [None]
  - THYROID DISORDER [None]
  - WEIGHT INCREASED [None]
